FAERS Safety Report 9008332 (Version 2)
Quarter: 2013Q1

REPORT INFORMATION
  Report Type: Spontaneous
  Country: US (occurrence: None)
  Receive Date: 20121227
  Receipt Date: 20130211
  Transmission Date: 20140127
  Serious: Yes (Death, Other)
  Sender: FDA-Public Use
  Company Number: TPA2012A09989

PATIENT
  Age: 75 Year
  Sex: Male
  Weight: 108.86 kg

DRUGS (4)
  1. ACTOS [Suspect]
     Indication: TYPE 2 DIABETES MELLITUS
     Dates: start: 20050717, end: 20071209
  2. HUMULIN(INSULIN HUMAN, INSULIN HUMAN INJECTION, ISOPHANE) [Concomitant]
  3. GLIMEPIRIDE(GLIMEPIRIDE) [Concomitant]
  4. METFORMIN(METFORMIN) [Concomitant]

REACTIONS (1)
  - Metastatic carcinoma of the bladder [None]
